FAERS Safety Report 6973782-2 (Version None)
Quarter: 2010Q3

REPORT INFORMATION
  Report Type: 
  Country: None (occurrence: None)
  Receive Date: 20100909
  Receipt Date: 20100902
  Transmission Date: 20110219
  Serious: Yes (Other)
  Sender: FDA-Public Use
  Company Number: A0866323A

PATIENT
  Age: 86 Year
  Sex: Female

DRUGS (6)
  1. ADVAIR DISKUS 100/50 [Suspect]
     Indication: ASTHMA
     Dosage: 2PUFF TWICE PER DAY
     Route: 055
     Dates: start: 20100201, end: 20100709
  2. SPIRIVA [Concomitant]
     Dosage: 18MCG PER DAY
     Route: 055
  3. UNKNOWN [Concomitant]
  4. LEVOTHYROXINE SODIUM [Concomitant]
     Dosage: 175MCG PER DAY
     Route: 048
  5. LORATADINE [Concomitant]
     Dosage: 10MG PER DAY
     Route: 048
  6. MAXZIDE [Concomitant]
     Route: 048

REACTIONS (5)
  - ASTHMA [None]
  - COUGH [None]
  - DYSPNOEA [None]
  - PNEUMONIA [None]
  - VISUAL IMPAIRMENT [None]
